FAERS Safety Report 6668592-X (Version None)
Quarter: 2010Q2

REPORT INFORMATION
  Report Type: 
  Country: None (occurrence: None)
  Receive Date: 20100406
  Receipt Date: 20100325
  Transmission Date: 20101027
  Serious: Yes (Hospitalization)
  Sender: FDA-Public Use
  Company Number: FR-MEDIMMUNE-MEDI-0010913

PATIENT

DRUGS (2)
  1. SYNAGIS [Suspect]
     Dates: start: 20100109, end: 20100109
  2. SYNAGIS [Suspect]
     Dates: start: 20100209, end: 20100309

REACTIONS (5)
  - HYPERTONIA [None]
  - HYPOTONIA [None]
  - MALAISE [None]
  - REGURGITATION [None]
  - STARING [None]
